FAERS Safety Report 9203728 (Version 1)
Quarter: 2013Q1

REPORT INFORMATION
  Report Type: Spontaneous
  Country: US (occurrence: None)
  Receive Date: 20130329
  Receipt Date: 20130329
  Transmission Date: 20140127
  Serious: Yes (Other)
  Sender: FDA-Public Use
  Company Number: None

PATIENT
  Sex: Male

DRUGS (2)
  1. ALBUTEROL 0.083% UNIT DOSE [Suspect]
     Indication: ASTHMA
     Dosage: INHALED NEBULIZED QID
     Dates: start: 2010
  2. ALBUTEROL 0.083% UNIT DOSE [Suspect]
     Indication: CHRONIC OBSTRUCTIVE PULMONARY DISEASE
     Dosage: INHALED NEBULIZED QID
     Dates: start: 2010

REACTIONS (4)
  - Panic attack [None]
  - Heart rate increased [None]
  - Respiratory rate increased [None]
  - Hyperventilation [None]
